FAERS Safety Report 15202456 (Version 3)
Quarter: 2018Q4

REPORT INFORMATION
  Report Type: Spontaneous
  Country: US (occurrence: US)
  Receive Date: 20180726
  Receipt Date: 20181016
  Transmission Date: 20190204
  Serious: No
  Sender: FDA-Public Use
  Company Number: US-SA-2018SA197408

PATIENT
  Age: 83 Year
  Sex: Male

DRUGS (1)
  1. DUPIXENT [Suspect]
     Active Substance: DUPILUMAB
     Dosage: 300 MG, QOW
     Route: 058
     Dates: start: 20180406, end: 20180922

REACTIONS (6)
  - Skin exfoliation [Unknown]
  - Eyelid oedema [Unknown]
  - Eye pruritus [Unknown]
  - Erythema [Unknown]
  - Oral herpes [Unknown]
  - Condition aggravated [Unknown]
